FAERS Safety Report 18937171 (Version 1)
Quarter: 2021Q1

REPORT INFORMATION
  Report Type: Spontaneous
  Country: US (occurrence: US)
  Receive Date: 20210224
  Receipt Date: 20210224
  Transmission Date: 20210420
  Serious: Yes (Other)
  Sender: FDA-Public Use
  Company Number: US-B.I. PHARMACEUTICALS,INC./RIDGEFIELD-2021-BI-084641

PATIENT
  Age: 51 Year
  Sex: Male

DRUGS (1)
  1. SPIRIVA [Suspect]
     Active Substance: TIOTROPIUM BROMIDE MONOHYDRATE
     Indication: CHRONIC OBSTRUCTIVE PULMONARY DISEASE
     Dosage: NR
     Route: 065
     Dates: start: 2006, end: 2006

REACTIONS (9)
  - Drug ineffective [Unknown]
  - Atrial fibrillation [Unknown]
  - Cataract [Recovered/Resolved]
  - Sleep apnoea syndrome [Recovered/Resolved]
  - Syncope [Unknown]
  - Gastrooesophageal reflux disease [Not Recovered/Not Resolved]
  - Hepatitis C [Unknown]
  - Respiratory arrest [Recovered/Resolved]
  - Vocal cord dysfunction [Recovering/Resolving]

NARRATIVE: CASE EVENT DATE: 2006
